FAERS Safety Report 23438154 (Version 2)
Quarter: 2024Q1

REPORT INFORMATION
  Report Type: Report from Study
  Country: US (occurrence: US)
  Receive Date: 20240124
  Receipt Date: 20240201
  Transmission Date: 20240409
  Serious: Yes (Hospitalization)
  Sender: FDA-Public Use
  Company Number: US-INCYTE CORPORATION-2022IN000301

PATIENT

DRUGS (1)
  1. JAKAFI [Suspect]
     Active Substance: RUXOLITINIB
     Indication: Polycythaemia vera
     Dosage: 10 MILLIGRAM
     Route: 065

REACTIONS (5)
  - COVID-19 [Unknown]
  - Fatigue [Unknown]
  - Bone pain [Unknown]
  - Product availability issue [Unknown]
  - Dizziness [Unknown]

NARRATIVE: CASE EVENT DATE: 20240116
